FAERS Safety Report 6965990-1 (Version None)
Quarter: 2010Q3

REPORT INFORMATION
  Report Type: 
  Country: None (occurrence: None)
  Receive Date: 20100903
  Receipt Date: 20100826
  Transmission Date: 20110219
  Serious: Yes (Hospitalization, Other)
  Sender: FDA-Public Use
  Company Number: BR-ABBOTT-10P-020-0666669-00

PATIENT
  Sex: Female
  Weight: 65 kg

DRUGS (10)
  1. HUMIRA [Suspect]
     Indication: RHEUMATOID ARTHRITIS
     Route: 058
     Dates: start: 20040101, end: 20091220
  2. MAREVAN [Suspect]
     Indication: ARRHYTHMIA
     Route: 048
  3. AMIODARONE HYDROCHLORIDE [Concomitant]
     Indication: ARRHYTHMIA
     Dosage: 6- 200 MG IN 7 DAYS
     Route: 048
     Dates: start: 20070101
  4. LEVOTHYROXINE [Concomitant]
     Indication: THYROID DISORDER
     Route: 048
  5. BROMOPRIDE [Concomitant]
     Indication: GASTRIC DISORDER
     Route: 048
  6. OMEPRAZOLE [Concomitant]
     Indication: GASTRIC DISORDER
     Route: 048
  7. PREDNISONE [Concomitant]
     Indication: RHEUMATOID ARTHRITIS
     Route: 048
  8. PREDNISONE [Concomitant]
  9. COLECALCIFEROL, VITAMIN A ACETATE (AD-TIL) [Concomitant]
     Indication: BONE DISORDER
     Route: 048
  10. RANITIDINE [Concomitant]
     Indication: GASTRIC DISORDER
     Dosage: 150 MG
     Route: 048

REACTIONS (8)
  - ARRHYTHMIA [None]
  - MOBILITY DECREASED [None]
  - NOSOCOMIAL INFECTION [None]
  - POLYNEUROPATHY [None]
  - RENAL FAILURE [None]
  - RESPIRATORY FAILURE [None]
  - RETROPERITONEAL HAEMORRHAGE [None]
  - URINARY TRACT INFECTION [None]
